FAERS Safety Report 13648457 (Version 2)
Quarter: 2017Q2

REPORT INFORMATION
  Report Type: Spontaneous
  Country: JP (occurrence: JP)
  Receive Date: 20170613
  Receipt Date: 20170622
  Transmission Date: 20170830
  Serious: Yes (Other)
  Sender: FDA-Public Use
  Company Number: JP-BAYER-2017-106760

PATIENT
  Age: 73 Year
  Sex: Male

DRUGS (2)
  1. BAYASPIRIN 100 MG [Suspect]
     Active Substance: ASPIRIN
     Dosage: UNK
     Route: 050
  2. PRASUGREL. [Concomitant]
     Active Substance: PRASUGREL
     Dosage: UNK
     Route: 048

REACTIONS (2)
  - Incorrect route of drug administration [None]
  - Myocardial infarction [Recovered/Resolved]
